FAERS Safety Report 14869126 (Version 1)
Quarter: 2018Q2

REPORT INFORMATION
  Report Type: Report from Study
  Country: GB (occurrence: GB)
  Receive Date: 20180509
  Receipt Date: 20180509
  Transmission Date: 20180711
  Serious: Yes (Other)
  Sender: FDA-Public Use
  Company Number: GB-BEH-2018090085

PATIENT

DRUGS (2)
  1. RIASTAP [Suspect]
     Active Substance: FIBRINOGEN HUMAN
     Indication: HAEMORRHAGE PROPHYLAXIS
     Dosage: UNK
     Route: 065
     Dates: start: 20160519
  2. RIASTAP [Suspect]
     Active Substance: FIBRINOGEN HUMAN
     Indication: CARDIOPULMONARY BYPASS

REACTIONS (5)
  - Bronchial injury [Recovered/Resolved]
  - Bronchial haemorrhage [Recovered/Resolved]
  - Hypoxia [Recovered/Resolved]
  - Bronchostenosis [Recovered/Resolved]
  - Electrocardiogram ST segment depression [Recovered/Resolved]

NARRATIVE: CASE EVENT DATE: 20160519
